FAERS Safety Report 17442209 (Version 1)
Quarter: 2020Q1

REPORT INFORMATION
  Report Type: Report from Study
  Country: CN (occurrence: CN)
  Receive Date: 20200220
  Receipt Date: 20200220
  Transmission Date: 20200409
  Serious: Yes (Other)
  Sender: FDA-Public Use
  Company Number: CN-BAYER-2020-029846

PATIENT
  Age: 26 Year
  Sex: Male

DRUGS (2)
  1. SORAFENIB [Suspect]
     Active Substance: SORAFENIB
     Indication: HEPATOCELLULAR CARCINOMA
     Dosage: 400 MG, BID
     Route: 048
     Dates: start: 20180822
  2. OXALIPLATIN. [Concomitant]
     Active Substance: OXALIPLATIN
     Indication: HEPATOCELLULAR CARCINOMA
     Dosage: 85 MG/M2, EVERY 3 WEEKS VIA REPETITIVE CATHETERIZATION

REACTIONS (2)
  - Renal failure [None]
  - Nephritis [None]

NARRATIVE: CASE EVENT DATE: 20181118
